FAERS Safety Report 5487553-X (Version None)
Quarter: 2007Q4

REPORT INFORMATION
  Report Type: 
  Country: None (occurrence: None)
  Receive Date: 20071015
  Receipt Date: 20071003
  Transmission Date: 20080405
  Serious: Yes (Hospitalization)
  Sender: FDA-Public Use
  Company Number: GXKR2007GB08560

PATIENT
  Age: 36 Year
  Sex: Female

DRUGS (2)
  1. METRONIDAZOLE [Suspect]
     Indication: INFECTION
     Dosage: 400 MG, TID
     Dates: start: 20070810, end: 20070814
  2. METRONIDAZOLE [Suspect]
     Indication: INFECTION
     Dosage: 400 MG, TID
     Dates: start: 20070725

REACTIONS (2)
  - OBSTRUCTIVE AIRWAYS DISORDER [None]
  - SWELLING FACE [None]
